FAERS Safety Report 15211626 (Version 1)
Quarter: 2018Q3

REPORT INFORMATION
  Report Type: Spontaneous
  Country: US (occurrence: US)
  Receive Date: 20180702
  Receipt Date: 20180702
  Transmission Date: 20181010
  Serious: No
  Sender: FDA-Public Use
  Company Number: None

PATIENT
  Sex: Female

DRUGS (2)
  1. CALCIUM CARBONATE. [Suspect]
     Active Substance: CALCIUM CARBONATE
  2. VELPHORO [Suspect]
     Active Substance: FERRIC OXYHYDROXIDE

REACTIONS (2)
  - Drug ineffective [None]
  - Abdominal discomfort [None]
